FAERS Safety Report 5336003-2 (Version None)
Quarter: 2007Q1

REPORT INFORMATION
  Report Type: 
  Country: None (occurrence: None)
  Receive Date: 20070302
  Receipt Date: 20070113
  Transmission Date: 20070707
  Serious: No
  Sender: FDA-Public Use
  Company Number: PHEH2007US00877

PATIENT
  Sex: Female

DRUGS (1)
  1. ENABLEX [Suspect]

REACTIONS (1)
  - DRY MOUTH [None]
